FAERS Safety Report 24451678 (Version 3)
Quarter: 2025Q1

REPORT INFORMATION
  Report Type: Spontaneous
  Country: CL (occurrence: CL)
  Receive Date: 20241017
  Receipt Date: 20250324
  Transmission Date: 20250408
  Serious: Yes (Other)
  Sender: BIOMARIN
  Company Number: CL-BIOMARINAP-CL-2024-161207

PATIENT

DRUGS (1)
  1. VIMIZIM [Suspect]
     Active Substance: ELOSULFASE ALFA
     Indication: Mucopolysaccharidosis IV
     Route: 042
     Dates: start: 20151014

REACTIONS (8)
  - Spinal cord compression [Not Recovered/Not Resolved]
  - Congenital musculoskeletal disorder [Not Recovered/Not Resolved]
  - Asthenia [Recovering/Resolving]
  - Pain [Recovering/Resolving]
  - Neck pain [Recovering/Resolving]
  - Balance disorder [Recovering/Resolving]
  - Gait disturbance [Recovering/Resolving]
  - Neuropathy peripheral [Recovering/Resolving]
